FAERS Safety Report 16297470 (Version 3)
Quarter: 2019Q3

REPORT INFORMATION
  Report Type: Spontaneous
  Country: US (occurrence: US)
  Receive Date: 20190510
  Receipt Date: 20190718
  Transmission Date: 20191004
  Serious: Yes (Other)
  Sender: FDA-Public Use
  Company Number: US-PFIZER INC-2019197337

PATIENT
  Age: 71 Year
  Sex: Female
  Weight: 94.33 kg

DRUGS (5)
  1. XGEVA [Suspect]
     Active Substance: DENOSUMAB
     Indication: METASTASES TO BONE
     Dosage: UNK, MONTHLY
     Dates: start: 201601
  2. LETROZOLE. [Concomitant]
     Active Substance: LETROZOLE
     Indication: BREAST CANCER METASTATIC
     Dosage: 2.5 MG, 1X/DAY
     Route: 048
     Dates: start: 201601
  3. IBRANCE [Suspect]
     Active Substance: PALBOCICLIB
     Indication: BREAST CANCER METASTATIC
  4. XGEVA [Suspect]
     Active Substance: DENOSUMAB
     Indication: OSTEOGENESIS IMPERFECTA
  5. IBRANCE [Suspect]
     Active Substance: PALBOCICLIB
     Indication: BREAST CANCER FEMALE
     Dosage: 125 MG, CYCLIC (21DAYS (OFF 7DAYS)
     Dates: start: 201601

REACTIONS (12)
  - Dental caries [Unknown]
  - Chest pain [Unknown]
  - Blood potassium decreased [Unknown]
  - Nervousness [Unknown]
  - Tremor [Unknown]
  - Pain in jaw [Unknown]
  - Full blood count decreased [Recovered/Resolved]
  - Osteogenesis imperfecta [Not Recovered/Not Resolved]
  - Blood magnesium decreased [Unknown]
  - Anxiety [Unknown]
  - Body height decreased [Unknown]
  - Blood calcium decreased [Recovering/Resolving]

NARRATIVE: CASE EVENT DATE: 2016
